FAERS Safety Report 21768084 (Version 1)
Quarter: 2022Q4

REPORT INFORMATION
  Report Type: Spontaneous
  Country: JP (occurrence: JP)
  Receive Date: 20221222
  Receipt Date: 20221222
  Transmission Date: 20230113
  Serious: Yes (Life-Threatening, Hospitalization)
  Sender: FDA-Public Use
  Company Number: JP-ferring-EVA202201485FERRINGPH

PATIENT

DRUGS (5)
  1. DINOPROSTONE [Suspect]
     Active Substance: DINOPROSTONE
     Indication: Induction of cervix ripening
     Dosage: UNK
     Route: 064
  2. DINOPROSTONE [Suspect]
     Active Substance: DINOPROSTONE
     Indication: Delivery
  3. DINOPROSTONE [Suspect]
     Active Substance: DINOPROSTONE
     Indication: Bishop score
  4. OXYTOCIN [Concomitant]
     Active Substance: OXYTOCIN
     Indication: Uterine hyperstimulation
     Route: 064
  5. PROSTIN E2 [Concomitant]
     Active Substance: DINOPROSTONE
     Indication: Uterine hyperstimulation
     Route: 064

REACTIONS (3)
  - Heart disease congenital [Unknown]
  - Foetal heart rate deceleration abnormality [Recovered/Resolved]
  - Nonreassuring foetal heart rate pattern [Recovered/Resolved]
